APPROVED DRUG PRODUCT: BACTRIM DS
Active Ingredient: SULFAMETHOXAZOLE; TRIMETHOPRIM
Strength: 800MG;160MG
Dosage Form/Route: TABLET;ORAL
Application: N017377 | Product #002 | TE Code: AB
Applicant: SUN PHARMACEUTICAL INDUSTRIES INC
Approved: Approved Prior to Jan 1, 1982 | RLD: Yes | RS: Yes | Type: RX